FAERS Safety Report 15392500 (Version 1)
Quarter: 2018Q3

REPORT INFORMATION
  Report Type: Report from Study
  Country: US (occurrence: US)
  Receive Date: 20180917
  Receipt Date: 20180917
  Transmission Date: 20181010
  Serious: Yes (Hospitalization, Other)
  Sender: FDA-Public Use
  Company Number: US-SHIRE-US201834889

PATIENT
  Sex: Female

DRUGS (1)
  1. GATTEX [Suspect]
     Active Substance: TEDUGLUTIDE\WATER
     Indication: PRODUCT USED FOR UNKNOWN INDICATION
     Dosage: DOSE 3 (UNIT NOT PROVIDED).
     Route: 065
     Dates: start: 20160316

REACTIONS (4)
  - Hospitalisation [Unknown]
  - Complication associated with device [Unknown]
  - Asthenia [Unknown]
  - Abdominal pain upper [Unknown]
